FAERS Safety Report 24200817 (Version 2)
Quarter: 2024Q4

REPORT INFORMATION
  Report Type: Spontaneous
  Country: GR (occurrence: GR)
  Receive Date: 20240812
  Receipt Date: 20241011
  Transmission Date: 20250115
  Serious: No
  Sender: PFIZER
  Company Number: GR-PFIZER INC-PV202400099821

PATIENT
  Age: 8 Year
  Sex: Female
  Weight: 18 kg

DRUGS (1)
  1. GENOTROPIN [Suspect]
     Active Substance: SOMATROPIN
     Indication: Short stature
     Dosage: 0.6 MG / 7 DAYS (0.6 AND 0.7 IN WEEKENDS, ABOUT 7 DOSES PER WEEK)
     Route: 058
     Dates: start: 20230130

REACTIONS (2)
  - Product dose omission issue [Unknown]
  - Device issue [Unknown]
